FAERS Safety Report 24265782 (Version 3)
Quarter: 2024Q3

REPORT INFORMATION
  Report Type: Spontaneous
  Country: US (occurrence: US)
  Receive Date: 20240830
  Receipt Date: 20240911
  Transmission Date: 20241017
  Serious: Yes (Other)
  Sender: TEVA
  Company Number: US-TEVA-VS-3236419

PATIENT
  Age: 46 Year
  Sex: Female

DRUGS (3)
  1. AUSTEDO XR [Suspect]
     Active Substance: DEUTETRABENAZINE
     Indication: Tardive dyskinesia
     Dosage: (4-WEEK?PATIENT TITRATION KIT)
     Route: 065
     Dates: start: 20240816, end: 2024
  2. AUSTEDO XR [Suspect]
     Active Substance: DEUTETRABENAZINE
     Indication: Tardive dyskinesia
     Dosage: (4-WEEK PATIENT TITRATION KIT)
     Route: 065
     Dates: start: 2024, end: 2024
  3. AUSTEDO XR [Suspect]
     Active Substance: DEUTETRABENAZINE
     Indication: Tardive dyskinesia
     Dosage: (4-WEEK PATIENT TITRATION KIT)
     Route: 065
     Dates: start: 20240816, end: 2024

REACTIONS (6)
  - Pruritus [Not Recovered/Not Resolved]
  - Blister [Not Recovered/Not Resolved]
  - Eczema [Unknown]
  - Burning sensation [Not Recovered/Not Resolved]
  - Scar [Unknown]
  - Product availability issue [Unknown]

NARRATIVE: CASE EVENT DATE: 20240101
